FAERS Safety Report 22295869 (Version 1)
Quarter: 2023Q2

REPORT INFORMATION
  Report Type: Spontaneous
  Country: FI (occurrence: FI)
  Receive Date: 20230508
  Receipt Date: 20230508
  Transmission Date: 20230722
  Serious: Yes (Hospitalization)
  Sender: FDA-Public Use
  Company Number: None

PATIENT
  Age: 65 Year
  Sex: Female

DRUGS (11)
  1. XALATAN [Suspect]
     Active Substance: LATANOPROST
     Indication: Glaucoma
     Dosage: UNK
     Dates: start: 200705, end: 20190828
  2. COSOPT [Suspect]
     Active Substance: DORZOLAMIDE HYDROCHLORIDE\TIMOLOL MALEATE
     Indication: Glaucoma
     Dosage: UNK
     Dates: start: 200705, end: 20190828
  3. ACLIDINIUM BROMIDE\FORMOTEROL FUMARATE [Concomitant]
     Active Substance: ACLIDINIUM BROMIDE\FORMOTEROL FUMARATE
     Indication: Chronic obstructive pulmonary disease
     Dosage: 2 DOSAGE FORM, QD (2 DF, DAILY)
     Route: 055
     Dates: start: 201509, end: 201610
  4. BUDESONIDE\FORMOTEROL FUMARATE [Concomitant]
     Active Substance: BUDESONIDE\FORMOTEROL FUMARATE
     Indication: Asthma
     Dosage: 2 DOSAGE FORM, QD (2 DF, DAILY)
     Route: 055
     Dates: start: 201707, end: 202201
  5. BUDESONIDE\FORMOTEROL FUMARATE [Concomitant]
     Active Substance: BUDESONIDE\FORMOTEROL FUMARATE
     Indication: Chronic obstructive pulmonary disease
  6. ALBUTEROL [Concomitant]
     Active Substance: ALBUTEROL
     Indication: Chronic obstructive pulmonary disease
     Dosage: PRN (AS NECESSARY)
     Route: 055
     Dates: start: 201610
  7. FLUTICASONE FUROATE\VILANTEROL TRIFENATATE [Concomitant]
     Active Substance: FLUTICASONE FUROATE\VILANTEROL TRIFENATATE
     Indication: Asthma
     Dosage: 2 DOSAGE FORM, QD (2 DF, DAILY)
     Route: 055
     Dates: start: 201611, end: 201703
  8. FLUTICASONE FUROATE\VILANTEROL TRIFENATATE [Concomitant]
     Active Substance: FLUTICASONE FUROATE\VILANTEROL TRIFENATATE
     Indication: Chronic obstructive pulmonary disease
  9. SPIRIVA RESPIMAT [Concomitant]
     Active Substance: TIOTROPIUM BROMIDE
     Indication: Asthma
     Dosage: 2 DOSAGE FORM, QD (2 DF, DAILY)
     Route: 055
     Dates: start: 201610, end: 201703
  10. SPIRIVA RESPIMAT [Concomitant]
     Active Substance: TIOTROPIUM BROMIDE
     Indication: Chronic obstructive pulmonary disease
  11. TAMOFEN [Concomitant]
     Active Substance: TAMOXIFEN CITRATE
     Indication: Breast cancer
     Dosage: 20 MILLIGRAM, QD (20 MG, DAILY)
     Route: 048
     Dates: start: 2009, end: 201407

REACTIONS (41)
  - Pain [Recovering/Resolving]
  - Dizziness [Recovering/Resolving]
  - Dry mouth [Recovering/Resolving]
  - Nausea [Recovering/Resolving]
  - Nightmare [Recovering/Resolving]
  - Ear pain [Recovering/Resolving]
  - Pharyngeal oedema [Recovering/Resolving]
  - Dyspnoea [Recovering/Resolving]
  - Sacral pain [Recovering/Resolving]
  - Muscular weakness [Recovering/Resolving]
  - Chest discomfort [Recovering/Resolving]
  - Tongue oedema [Recovering/Resolving]
  - Paraesthesia [Recovering/Resolving]
  - Dysgeusia [Recovering/Resolving]
  - Asthenia [Recovering/Resolving]
  - Oedema mouth [Recovering/Resolving]
  - Myalgia [Recovering/Resolving]
  - Dysuria [Recovering/Resolving]
  - Vision blurred [Recovering/Resolving]
  - Amnesia [Recovering/Resolving]
  - Contusion [Recovering/Resolving]
  - Alopecia [Recovering/Resolving]
  - Syncope [Recovering/Resolving]
  - Diarrhoea [Recovering/Resolving]
  - Arthralgia [Recovering/Resolving]
  - Dysgraphia [Recovering/Resolving]
  - Headache [Recovering/Resolving]
  - Depression [Recovering/Resolving]
  - Intermittent claudication [Recovering/Resolving]
  - Asthma [Recovering/Resolving]
  - Hyperhidrosis [Recovering/Resolving]
  - Rash [Recovering/Resolving]
  - Fatigue [Recovering/Resolving]
  - Diplopia [Recovering/Resolving]
  - Disturbance in attention [Recovering/Resolving]
  - Lip oedema [Recovering/Resolving]
  - Pruritus [Recovering/Resolving]
  - Hypoaesthesia [Recovering/Resolving]
  - Epistaxis [Recovering/Resolving]
  - Throat irritation [Recovering/Resolving]
  - Muscle spasms [Recovering/Resolving]

NARRATIVE: CASE EVENT DATE: 20070501
